FAERS Safety Report 25226944 (Version 1)
Quarter: 2025Q2

REPORT INFORMATION
  Report Type: Spontaneous
  Country: RU (occurrence: RU)
  Receive Date: 20250422
  Receipt Date: 20250422
  Transmission Date: 20250716
  Serious: Yes (Other)
  Sender: AMERICAN REGENT
  Company Number: RU-AMERICAN REGENT INC-2025001652

PATIENT
  Age: 36 Year
  Sex: Female
  Weight: 75 kg

DRUGS (4)
  1. FERINJECT [Suspect]
     Active Substance: FERRIC CARBOXYMALTOSE
     Indication: Iron deficiency anaemia
     Route: 042
     Dates: start: 20250327, end: 20250327
  2. NICAMETATE [Suspect]
     Active Substance: NICAMETATE
     Indication: Product used for unknown indication
     Route: 065
     Dates: start: 20250327, end: 20250327
  3. FERLATUM FOL [Concomitant]
     Indication: Product used for unknown indication
     Route: 065
     Dates: start: 20241226, end: 20250121
  4. LIKFERR [POLYSACCHARIDE-IRON COMPLEX] [Concomitant]
     Indication: Product used for unknown indication
     Route: 065
     Dates: start: 20250122, end: 20250131

REACTIONS (6)
  - Hyperaemia [Recovered/Resolved]
  - Anxiety [Recovered/Resolved]
  - Dyspnoea [Recovered/Resolved]
  - Paraesthesia [Recovered/Resolved]
  - Swelling face [Recovered/Resolved]
  - Maternal exposure during pregnancy [Unknown]

NARRATIVE: CASE EVENT DATE: 20250327
